FAERS Safety Report 26071339 (Version 1)
Quarter: 2025Q4

REPORT INFORMATION
  Report Type: Report from Study
  Country: CO (occurrence: CO)
  Receive Date: 20251120
  Receipt Date: 20251120
  Transmission Date: 20260117
  Serious: Yes (Other)
  Sender: GILEAD
  Company Number: CO-GILEAD-2025-0736728

PATIENT
  Age: 24 Year
  Sex: Male

DRUGS (1)
  1. SOFOSBUVIR\VELPATASVIR [Suspect]
     Active Substance: SOFOSBUVIR\VELPATASVIR
     Indication: Hepatitis C
     Dosage: 500 MG, QD
     Route: 048
     Dates: start: 20251028

REACTIONS (3)
  - Exfoliative rash [Unknown]
  - Urticaria [Not Recovered/Not Resolved]
  - Burning sensation [Unknown]
